FAERS Safety Report 9435423 (Version 1)
Quarter: 2013Q3

REPORT INFORMATION
  Report Type: Report from Study
  Country: JP (occurrence: JP)
  Receive Date: 20130801
  Receipt Date: 20130801
  Transmission Date: 20140515
  Serious: Yes (Other)
  Sender: FDA-Public Use
  Company Number: JP-VIIV HEALTHCARE LIMITED-B0911087A

PATIENT
  Age: 39 Year
  Sex: Male

DRUGS (6)
  1. CELSENTRI [Suspect]
     Indication: HIV INFECTION
     Route: 048
     Dates: start: 20111125
  2. COMBIVIR [Suspect]
     Indication: HIV INFECTION
     Route: 048
     Dates: end: 20111124
  3. NORVIR [Suspect]
     Indication: HIV INFECTION
     Route: 048
     Dates: start: 20111125
  4. PREZISTA NAIVE [Suspect]
     Indication: HIV INFECTION
     Route: 048
     Dates: start: 20111125
  5. ISENTRESS [Suspect]
     Indication: HIV INFECTION
     Route: 048
     Dates: start: 20100604
  6. BEZATOL SR [Concomitant]
     Indication: HYPERLIPIDAEMIA
     Dosage: 200MG TWICE PER DAY
     Route: 048
     Dates: start: 20120525

REACTIONS (2)
  - Lipodystrophy acquired [Not Recovered/Not Resolved]
  - Hypertriglyceridaemia [Not Recovered/Not Resolved]
